FAERS Safety Report 22113887 (Version 1)
Quarter: 2023Q1

REPORT INFORMATION
  Report Type: Spontaneous
  Country: US (occurrence: US)
  Receive Date: 20230320
  Receipt Date: 20230320
  Transmission Date: 20230418
  Serious: No
  Sender: FDA-Public Use
  Company Number: US-INCYTE CORPORATION-2023IN002461

PATIENT

DRUGS (2)
  1. JAKAFI [Suspect]
     Active Substance: RUXOLITINIB
     Dosage: UNK
     Route: 048
     Dates: end: 20230219
  2. HYOSCYAMINE [Suspect]
     Active Substance: HYOSCYAMINE
     Route: 065

REACTIONS (15)
  - Fatigue [Unknown]
  - Gastric disorder [Unknown]
  - Abdominal pain upper [Recovered/Resolved]
  - Rash [Unknown]
  - Weight increased [Unknown]
  - Constipation [Unknown]
  - Gastrointestinal motility disorder [Unknown]
  - Migraine with aura [Recovering/Resolving]
  - Sleep disorder [Unknown]
  - Cerebral disorder [Unknown]
  - Feeling abnormal [Unknown]
  - Skin injury [Unknown]
  - Skin haemorrhage [Unknown]
  - Headache [Unknown]
  - Contusion [Unknown]
